FAERS Safety Report 7125285-2 (Version None)
Quarter: 2010Q4

REPORT INFORMATION
  Report Type: 
  Country: None (occurrence: None)
  Receive Date: 20101129
  Receipt Date: 20101115
  Transmission Date: 20110411
  Serious: Yes (Disabling)
  Sender: FDA-Public Use
  Company Number: US-ROCHE-385941

PATIENT
  Sex: Female
  Weight: 59 kg

DRUGS (2)
  1. ACCUTANE [Suspect]
     Indication: ACNE
     Route: 048
     Dates: start: 20011201, end: 20020515
  2. ESTROSTEP [Concomitant]
     Dates: start: 20011101

REACTIONS (13)
  - BLOOD CHOLESTEROL INCREASED [None]
  - COLITIS [None]
  - DRY EYE [None]
  - DRY SKIN [None]
  - EXCORIATION [None]
  - GASTROINTESTINAL DISORDER [None]
  - HAEMORRHOIDS [None]
  - INFLAMMATORY BOWEL DISEASE [None]
  - INTESTINAL HAEMORRHAGE [None]
  - IRON DEFICIENCY ANAEMIA [None]
  - LIP DRY [None]
  - OROPHARYNGEAL PAIN [None]
  - RECTAL HAEMORRHAGE [None]
